FAERS Safety Report 9271660 (Version 1)
Quarter: 2013Q2

REPORT INFORMATION
  Report Type: Spontaneous
  Country: US (occurrence: US)
  Receive Date: 20130506
  Receipt Date: 20130506
  Transmission Date: 20140414
  Serious: No
  Sender: FDA-Public Use
  Company Number: US-COVIDIEN/TYCO HEALTHCARE/MALLINCKRODT-T201204643

PATIENT
  Sex: Female

DRUGS (2)
  1. HYDROCODONE/ACETAMINOPHEN [Suspect]
     Indication: PAIN
     Dosage: 10/650 MG  Q6/Q8 HOURS PRN
  2. HYDROCODONE/ACETAMINOPHEN [Suspect]
     Dosage: 10/325 MG, UNK

REACTIONS (1)
  - Drug screen negative [Unknown]
